FAERS Safety Report 5521543-3 (Version None)
Quarter: 2007Q4

REPORT INFORMATION
  Report Type: 
  Country: None (occurrence: None)
  Receive Date: 20071119
  Receipt Date: 20071119
  Transmission Date: 20080405
  Serious: Yes (Hospitalization)
  Sender: FDA-Public Use
  Company Number: None

PATIENT
  Sex: Male
  Weight: 82.5547 kg

DRUGS (15)
  1. CAMPATH [Suspect]
     Indication: MYCOSIS FUNGOIDES
     Dosage: 30MG SQ Q 3 WEEKS SQ
     Route: 058
     Dates: start: 20070905
  2. CAMPATH [Suspect]
     Indication: MYCOSIS FUNGOIDES
     Dosage: 30MG SQ Q 3 WEEKS SQ
     Route: 058
     Dates: start: 20070912
  3. CAMPATH [Suspect]
     Indication: MYCOSIS FUNGOIDES
     Dosage: 30MG SQ Q 3 WEEKS SQ
     Route: 058
     Dates: start: 20071003
  4. CAMPATH [Suspect]
     Indication: MYCOSIS FUNGOIDES
     Dosage: 30MG SQ Q 3 WEEKS SQ
     Route: 058
     Dates: start: 20071024
  5. ALLOPURINOL [Concomitant]
  6. BENADRYL [Concomitant]
  7. NISOLDIPINE [Concomitant]
  8. PREDNISONE TAB [Concomitant]
  9. BACTRIM DS [Concomitant]
  10. CLOBETASOL PROP [Concomitant]
  11. COSOPT [Concomitant]
  12. PEPCID [Concomitant]
  13. ATARAX [Concomitant]
  14. LINEZOLID [Concomitant]
  15. ACYCLOVIR [Concomitant]

REACTIONS (4)
  - BACILLUS INFECTION [None]
  - PYREXIA [None]
  - SKIN BACTERIAL INFECTION [None]
  - SKIN LESION [None]
